FAERS Safety Report 25031351 (Version 1)
Quarter: 2025Q1

REPORT INFORMATION
  Report Type: Spontaneous
  Country: CN (occurrence: CN)
  Receive Date: 20250303
  Receipt Date: 20250303
  Transmission Date: 20250409
  Serious: Yes (Disabling)
  Sender: MYLAN
  Company Number: CN-MYLANLABS-2025M1016555

PATIENT
  Age: 79 Year
  Sex: Male
  Weight: 48 kg

DRUGS (3)
  1. LIPITOR [Suspect]
     Active Substance: ATORVASTATIN CALCIUM
     Indication: Hyperlipidaemia
     Dosage: 40 MILLIGRAM, QD (DAILY)
     Dates: start: 20250214, end: 20250218
  2. LIPITOR [Suspect]
     Active Substance: ATORVASTATIN CALCIUM
     Indication: Cerebral infarction
  3. LIPITOR [Suspect]
     Active Substance: ATORVASTATIN CALCIUM
     Indication: Arteriosclerosis

REACTIONS (2)
  - Liver injury [Unknown]
  - Incorrect route of product administration [Unknown]

NARRATIVE: CASE EVENT DATE: 20250218
